FAERS Safety Report 17853619 (Version 1)
Quarter: 2020Q2

REPORT INFORMATION
  Report Type: Spontaneous
  Country: US (occurrence: US)
  Receive Date: 20200603
  Receipt Date: 20200603
  Transmission Date: 20200714
  Serious: No
  Sender: FDA-Public Use
  Company Number: US-LEADINGPHARMA-US-2020LEASPO00084

PATIENT
  Age: 63 Year
  Sex: Female

DRUGS (1)
  1. LORAZEPAM TABLETS USP [Suspect]
     Active Substance: LORAZEPAM
     Indication: PRODUCT USED FOR UNKNOWN INDICATION
     Route: 065

REACTIONS (3)
  - Feeling jittery [Unknown]
  - Feeling abnormal [Unknown]
  - Agitation [Unknown]
